FAERS Safety Report 12380931 (Version 3)
Quarter: 2016Q3

REPORT INFORMATION
  Report Type: Spontaneous
  Country: JP (occurrence: JP)
  Receive Date: 20160518
  Receipt Date: 20160812
  Transmission Date: 20161109
  Serious: Yes (Hospitalization, Other)
  Sender: FDA-Public Use
  Company Number: JP-PFIZER INC-2016257305

PATIENT
  Age: 73 Year
  Sex: Male

DRUGS (1)
  1. SELARA [Suspect]
     Active Substance: EPLERENONE
     Indication: OEDEMA DUE TO HEPATIC DISEASE
     Dosage: 50 MG, 1X/DAY
     Route: 048
     Dates: start: 20160307, end: 20160510

REACTIONS (2)
  - Hepatic encephalopathy [Recovering/Resolving]
  - Product use issue [Unknown]

NARRATIVE: CASE EVENT DATE: 20160314
